FAERS Safety Report 10049948 (Version 1)
Quarter: 2014Q1

REPORT INFORMATION
  Report Type: Spontaneous
  Country: US (occurrence: None)
  Receive Date: 20140331
  Receipt Date: 20140331
  Transmission Date: 20141002
  Serious: Yes (Other)
  Sender: FDA-Public Use
  Company Number: None

PATIENT
  Age: 61 Year
  Sex: Male
  Weight: 72.12 kg

DRUGS (3)
  1. XARELTO 20 MG JANSSEN [Suspect]
     Indication: DEEP VEIN THROMBOSIS
     Dosage: 1 TAB?SINCE 2011
     Route: 048
     Dates: start: 2011
  2. LOSARTAN TAB [Concomitant]
  3. SOURSOP TEA [Concomitant]

REACTIONS (1)
  - Thrombosis [None]
